FAERS Safety Report 4788951-X (Version None)
Quarter: 2005Q4

REPORT INFORMATION
  Report Type: 
  Country: None (occurrence: None)
  Receive Date: 20051004
  Receipt Date: 20050922
  Transmission Date: 20060501
  Serious: Yes (Other)
  Sender: FDA-Public Use
  Company Number: 2005131936

PATIENT
  Sex: Female

DRUGS (1)
  1. ROGAINE [Suspect]
     Indication: ALOPECIA
     Dosage: AMOUNT TWICE DAILY, TOPICAL
     Route: 061

REACTIONS (1)
  - QUADRUPLE VESSEL BYPASS GRAFT [None]
